FAERS Safety Report 4539588-9 (Version None)
Quarter: 2004Q4

REPORT INFORMATION
  Report Type: 
  Country: None (occurrence: None)
  Receive Date: 20041227
  Receipt Date: 20041227
  Transmission Date: 20050328
  Serious: Yes (Life-Threatening)
  Sender: FDA-Public Use
  Company Number: None

PATIENT
  Sex: Male
  Weight: 83.0083 kg

DRUGS (2)
  1. BACITRACIN / GOLD LINE [Suspect]
     Indication: EXCORIATION
     Dosage: NICKEL SIZE AMOUNT TOPICALLY APPLIED
     Dates: start: 20041220
  2. BACITRACIN / GOLD LINE [Suspect]
     Indication: INJURY
     Dosage: NICKEL SIZE AMOUNT TOPICALLY APPLIED
     Dates: start: 20041220

REACTIONS (1)
  - ANAPHYLACTIC REACTION [None]
